FAERS Safety Report 23775297 (Version 3)
Quarter: 2024Q3

REPORT INFORMATION
  Report Type: Report from Study
  Country: CA (occurrence: CA)
  Receive Date: 20240423
  Receipt Date: 20240912
  Transmission Date: 20241017
  Serious: Yes (Other)
  Sender: CSL BEHRING
  Company Number: CA-BEH-2023163936

PATIENT
  Age: 45 Year
  Sex: Female
  Weight: 44 kg

DRUGS (15)
  1. HIZENTRA [Suspect]
     Active Substance: HUMAN IMMUNOGLOBULIN G
     Indication: Primary immunodeficiency syndrome
     Dosage: 6 GRAM, QW
     Route: 065
     Dates: start: 20230922
  2. HIZENTRA [Suspect]
     Active Substance: HUMAN IMMUNOGLOBULIN G
     Dosage: UNK
     Route: 065
  3. HIZENTRA [Suspect]
     Active Substance: HUMAN IMMUNOGLOBULIN G
     Dosage: UNK
     Route: 065
  4. HIZENTRA [Suspect]
     Active Substance: HUMAN IMMUNOGLOBULIN G
     Dosage: UNK
     Route: 065
     Dates: start: 20240830
  5. LEAD ACETATE [Suspect]
     Active Substance: LEAD ACETATE
  6. LEVOTHYROXINE [Concomitant]
     Active Substance: LEVOTHYROXINE\LEVOTHYROXINE SODIUM
  7. CYCLOBENZAPRINE [Concomitant]
     Active Substance: CYCLOBENZAPRINE
  8. CONCERTA [Concomitant]
     Active Substance: METHYLPHENIDATE HYDROCHLORIDE
  9. CLEO 35 [Concomitant]
  10. AMLODIPINE [Concomitant]
     Active Substance: AMLODIPINE BESYLATE
  11. SULFASALAZINE [Concomitant]
     Active Substance: SULFASALAZINE
  12. CANDESARTAN [Concomitant]
     Active Substance: CANDESARTAN
  13. SYMBICORT [Concomitant]
     Active Substance: BUDESONIDE\FORMOTEROL FUMARATE DIHYDRATE
  14. FLUTICASONE FUROATE [Concomitant]
     Active Substance: FLUTICASONE FUROATE
  15. MAGNESIUM [Concomitant]
     Active Substance: MAGNESIUM

REACTIONS (20)
  - Renal failure [Recovered/Resolved]
  - Injection site oedema [Unknown]
  - Product preparation issue [Unknown]
  - Infusion site pain [Unknown]
  - Infusion site mass [Unknown]
  - Skin reaction [Unknown]
  - Fatigue [Unknown]
  - Infusion site mass [Unknown]
  - Infusion site pruritus [Unknown]
  - Pain [Recovered/Resolved]
  - Infusion site pruritus [Not Recovered/Not Resolved]
  - Infusion site haemorrhage [Unknown]
  - Infusion site pain [Unknown]
  - Infusion site discomfort [Unknown]
  - Infusion site hyperaesthesia [Unknown]
  - C-reactive protein abnormal [Unknown]
  - Weight increased [Unknown]
  - Pharyngeal erythema [Recovered/Resolved]
  - Pyrexia [Unknown]
  - Nausea [Unknown]

NARRATIVE: CASE EVENT DATE: 20230101
